FAERS Safety Report 7338753-5 (Version None)
Quarter: 2011Q1

REPORT INFORMATION
  Report Type: 
  Country: None (occurrence: None)
  Receive Date: 20110308
  Receipt Date: 20110204
  Transmission Date: 20110831
  Serious: Yes (Hospitalization)
  Sender: FDA-Public Use
  Company Number: PHHO2011US02513

PATIENT
  Sex: Male
  Weight: 83.7 kg

DRUGS (8)
  1. CALCIUM [Concomitant]
  2. SIMVASTATIN [Concomitant]
  3. ZOLEDRONATE [Suspect]
     Indication: PROSTATE CANCER
     Dosage: 4MG
     Route: 042
     Dates: start: 20110112, end: 20110112
  4. LEVOTHROID [Concomitant]
  5. SAMARIUM [Suspect]
     Dosage: 86.9 MG
     Dates: start: 20101230, end: 20101230
  6. ASPIRIN [Concomitant]
  7. VITAMIN D [Concomitant]
  8. LOTREL [Concomitant]

REACTIONS (10)
  - FRACTURE TREATMENT [None]
  - RENAL FAILURE ACUTE [None]
  - URETERIC OBSTRUCTION [None]
  - THROMBOCYTOPENIA [None]
  - FATIGUE [None]
  - NEOPLASM MALIGNANT [None]
  - PAIN IN EXTREMITY [None]
  - FEMUR FRACTURE [None]
  - THROMBOSIS [None]
  - MALAISE [None]
